FAERS Safety Report 25740091 (Version 1)
Quarter: 2025Q3

REPORT INFORMATION
  Report Type: Spontaneous
  Country: BR (occurrence: BR)
  Receive Date: 20250829
  Receipt Date: 20250829
  Transmission Date: 20251021
  Serious: Yes (Other)
  Sender: ANI
  Company Number: BR-ANIPHARMA-024305

PATIENT
  Sex: Female
  Weight: 69 kg

DRUGS (1)
  1. FLUVOXAMINE MALEATE [Suspect]
     Active Substance: FLUVOXAMINE MALEATE
     Indication: Depression
     Route: 048
     Dates: start: 20250813, end: 20250813

REACTIONS (4)
  - Seizure [Recovered/Resolved]
  - Nausea [Recovering/Resolving]
  - Feeding disorder [Unknown]
  - Tearfulness [Unknown]

NARRATIVE: CASE EVENT DATE: 20250813
